FAERS Safety Report 9339067 (Version 1)
Quarter: 2013Q2

REPORT INFORMATION
  Report Type: Spontaneous
  Country: US (occurrence: US)
  Receive Date: 20130610
  Receipt Date: 20130610
  Transmission Date: 20140414
  Serious: Yes (Other)
  Sender: FDA-Public Use
  Company Number: US-BAYER-2013-068835

PATIENT
  Age: 46 Year
  Sex: Female

DRUGS (3)
  1. ALEVE CAPLET [Suspect]
     Indication: MUSCLE TWITCHING
     Dosage: UNK
     Route: 048
     Dates: start: 201305
  2. ALEVE CAPLET [Suspect]
     Indication: MUSCLE TWITCHING
     Dosage: 2 DF, BID
     Route: 048
     Dates: start: 20130530
  3. LISINOPRIL [Concomitant]

REACTIONS (11)
  - Incorrect dose administered [None]
  - Loss of consciousness [Recovered/Resolved]
  - Dizziness [Not Recovered/Not Resolved]
  - Vertigo [Not Recovered/Not Resolved]
  - Hypoaesthesia [Not Recovered/Not Resolved]
  - Paraesthesia [Not Recovered/Not Resolved]
  - Abnormal behaviour [Not Recovered/Not Resolved]
  - Glassy eyes [Not Recovered/Not Resolved]
  - Somnolence [Not Recovered/Not Resolved]
  - Off label use [None]
  - Malaise [Not Recovered/Not Resolved]
